FAERS Safety Report 5341909-4 (Version None)
Quarter: 2007Q2

REPORT INFORMATION
  Report Type: 
  Country: None (occurrence: None)
  Receive Date: 20070601
  Receipt Date: 20070521
  Transmission Date: 20071010
  Serious: Yes (Hospitalization)
  Sender: FDA-Public Use
  Company Number: CA-ELI_LILLY_AND_COMPANY-CA200705006089

PATIENT
  Age: 84 Year
  Sex: Female

DRUGS (8)
  1. FORTEO [Suspect]
     Indication: OSTEOPOROSIS
     Dosage: 20 UG, DAILY (1/D)
     Route: 058
     Dates: start: 20060826
  2. MORPHINE [Concomitant]
  3. COUMADIN [Concomitant]
  4. TYLENOL EXTRA-STRENGTH [Concomitant]
  5. METHOTREXATE SODIUM [Concomitant]
  6. IRON [Concomitant]
  7. CALCIUM CHLORIDE [Concomitant]
  8. VITAMIN D [Concomitant]

REACTIONS (2)
  - CHOLELITHIASIS [None]
  - URINARY RETENTION [None]
